FAERS Safety Report 6805269-1 (Version None)
Quarter: 2010Q2

REPORT INFORMATION
  Report Type: 
  Country: None (occurrence: None)
  Receive Date: 20100628
  Receipt Date: 20070917
  Transmission Date: 20101027
  Serious: Yes (Other)
  Sender: FDA-Public Use
  Company Number: US-PFIZER INC-2007077815

PATIENT
  Sex: Female
  Weight: 85.909 kg

DRUGS (10)
  1. CADUET [Suspect]
     Indication: HYPERTENSION
     Dosage: 10/20 MG
     Dates: start: 20070901, end: 20070915
  2. CADUET [Suspect]
     Indication: BLOOD CHOLESTEROL INCREASED
  3. NORVASC [Suspect]
     Indication: HYPERTENSION
  4. LIPITOR [Suspect]
     Indication: BLOOD CHOLESTEROL INCREASED
  5. GLYBURIDE [Suspect]
     Indication: TYPE 2 DIABETES MELLITUS
  6. DIGOXIN [Concomitant]
  7. AMIODARONE [Concomitant]
  8. COZAAR [Concomitant]
  9. STARLIX [Concomitant]
  10. WARFARIN [Concomitant]

REACTIONS (1)
  - BLOOD GLUCOSE INCREASED [None]
